FAERS Safety Report 14392514 (Version 3)
Quarter: 2018Q1

REPORT INFORMATION
  Report Type: Spontaneous
  Country: US (occurrence: US)
  Receive Date: 20180116
  Receipt Date: 20180212
  Transmission Date: 20180509
  Serious: Yes (Hospitalization)
  Sender: FDA-Public Use
  Company Number: US-PFIZER INC-2018018097

PATIENT
  Age: 78 Year
  Sex: Male
  Weight: 81.65 kg

DRUGS (2)
  1. SOTALOL HCL [Concomitant]
     Active Substance: SOTALOL
     Indication: HEART RATE ABNORMAL
     Dosage: TAKES 1/2 TABLET IN THE MORNING AND 1/2 TABLET IN THE EVENING
  2. CADUET [Suspect]
     Active Substance: AMLODIPINE BESYLATE\ATORVASTATIN CALCIUM
     Indication: BLOOD PRESSURE ABNORMAL
     Dosage: [AMLODIPINE BESYLATE,5MG]/[ATORVASTATIN CALCIUM,40MG] TABLET BY MOUTH DAILY
     Route: 048

REACTIONS (2)
  - Blood pressure inadequately controlled [Unknown]
  - Dyspnoea [Recovered/Resolved]

NARRATIVE: CASE EVENT DATE: 20171128
